FAERS Safety Report 8963865 (Version 1)
Quarter: 2012Q4

REPORT INFORMATION
  Report Type: 
  Country: CN (occurrence: CN)
  Receive Date: 20121214
  Receipt Date: 20121214
  Transmission Date: 20130627
  Serious: Yes (Death)
  Sender: FDA-Public Use
  Company Number: CN-PFIZER INC-2012315533

PATIENT
  Age: 61 Year
  Sex: Female

DRUGS (1)
  1. SUTENT [Suspect]
     Indication: GASTROINTESTINAL STROMAL TUMOUR
     Dosage: UNK
     Route: 048
     Dates: start: 2012

REACTIONS (6)
  - Disease progression [Fatal]
  - Gastrointestinal stromal tumour [Fatal]
  - Hypertension [Fatal]
  - Oedema [Fatal]
  - Ascites [Fatal]
  - Haematochezia [Fatal]
